FAERS Safety Report 7129772-2 (Version None)
Quarter: 2010Q4

REPORT INFORMATION
  Report Type: 
  Country: None (occurrence: None)
  Receive Date: 20101130
  Receipt Date: 20101122
  Transmission Date: 20110411
  Serious: No
  Sender: FDA-Public Use
  Company Number: US-MERCK-1010USA02587

PATIENT
  Sex: Female

DRUGS (2)
  1. ISENTRESS [Suspect]
     Indication: HIV TEST POSITIVE
     Route: 048
     Dates: start: 20100301
  2. TRUVADA [Concomitant]
     Route: 048
     Dates: start: 20070101

REACTIONS (1)
  - PARANOIA [None]
